FAERS Safety Report 5609144-X (Version None)
Quarter: 2008Q1

REPORT INFORMATION
  Report Type: 
  Country: None (occurrence: None)
  Receive Date: 20080131
  Receipt Date: 20080124
  Transmission Date: 20080703
  Serious: Yes (Death)
  Sender: FDA-Public Use
  Company Number: FR-GENENTECH-254968

PATIENT
  Sex: Male

DRUGS (5)
  1. ACTILYSE [Suspect]
     Indication: THROMBOSIS
     Dosage: 90 MG, SINGLE
     Route: 042
     Dates: start: 20070825, end: 20070825
  2. LOVENOX [Concomitant]
     Indication: PROPHYLAXIS
     Dosage: 0.4 ML, QD
     Route: 058
     Dates: start: 20070826, end: 20070827
  3. NEXIUM [Concomitant]
     Indication: PROPHYLAXIS
     Dosage: 40 MG, QD
     Route: 042
     Dates: start: 20070826, end: 20070827
  4. NICARDIPINE HYDROCHLORIDE [Concomitant]
     Indication: HYPERTENSION
     Dosage: 2 MG, Q1H
     Route: 042
     Dates: start: 20070825, end: 20070826
  5. DIGOXIN [Concomitant]
     Indication: ATRIAL FIBRILLATION
     Dosage: 0.25 MG, QD
     Route: 048
     Dates: start: 20070825, end: 20070826

REACTIONS (1)
  - THROMBOCYTOPENIA [None]
